FAERS Safety Report 8917716 (Version 1)
Quarter: 2012Q4

REPORT INFORMATION
  Report Type: 
  Country: JP (occurrence: JP)
  Receive Date: 20121119
  Receipt Date: 20121119
  Transmission Date: 20130627
  Serious: Yes (Other)
  Sender: FDA-Public Use
  Company Number: PHHY2012JP105073

PATIENT
  Age: 53 Year
  Sex: Female

DRUGS (1)
  1. FAMCICLOVIR [Suspect]
     Dosage: 500 mg, UNK
     Route: 048
     Dates: start: 20120924, end: 20120924

REACTIONS (3)
  - Palpitations [Recovered/Resolved]
  - Asthenia [Recovered/Resolved]
  - Dizziness [Recovered/Resolved]
